FAERS Safety Report 7416052-0 (Version None)
Quarter: 2011Q2

REPORT INFORMATION
  Report Type: 
  Country: None (occurrence: None)
  Receive Date: 20110414
  Receipt Date: 20110408
  Transmission Date: 20111010
  Serious: Yes (Other)
  Sender: FDA-Public Use
  Company Number: CA-US-EMD SERONO, INC.-7003100

PATIENT
  Sex: Female

DRUGS (6)
  1. ACETAMINOPHEN [Concomitant]
  2. VITAMIN D [Concomitant]
  3. ACLASTA [Concomitant]
     Route: 042
  4. REBIF [Suspect]
  5. REBIF [Suspect]
     Indication: RELAPSING-REMITTING MULTIPLE SCLEROSIS
     Route: 058
     Dates: start: 20100407
  6. IBUPROPHEN (IBUPROFEN) [Concomitant]

REACTIONS (17)
  - FEELING OF BODY TEMPERATURE CHANGE [None]
  - INSOMNIA [None]
  - HYPOAESTHESIA [None]
  - MULTIPLE SCLEROSIS RELAPSE [None]
  - INFLUENZA LIKE ILLNESS [None]
  - INJECTION SITE ERYTHEMA [None]
  - VISUAL IMPAIRMENT [None]
  - NAUSEA [None]
  - FATIGUE [None]
  - PARAESTHESIA [None]
  - SPEECH DISORDER [None]
  - BALANCE DISORDER [None]
  - DYSGRAPHIA [None]
  - OPTIC NEURITIS [None]
  - LIMB DISCOMFORT [None]
  - CHILLS [None]
  - MYALGIA [None]
